FAERS Safety Report 4429010-5 (Version None)
Quarter: 2004Q3

REPORT INFORMATION
  Report Type: 
  Country: None (occurrence: None)
  Receive Date: 20040726
  Receipt Date: 20040412
  Transmission Date: 20050211
  Serious: No
  Sender: FDA-Public Use
  Company Number: USA040362158

PATIENT
  Age: 82 Year
  Sex: Female

DRUGS (19)
  1. FORTEO [Suspect]
     Indication: OSTEOPOROSIS
     Dates: start: 20040101
  2. MIACALCIN [Concomitant]
  3. PLAVIX [Concomitant]
  4. EFFEXOR [Concomitant]
  5. AMBIEN [Concomitant]
  6. LASIX [Concomitant]
  7. POTASSIUM [Concomitant]
  8. COZAAR [Concomitant]
  9. ASPIRIN [Concomitant]
  10. WELLBUTRIN [Concomitant]
  11. CALCIUM [Concomitant]
  12. METOPROLOL [Concomitant]
  13. NEXIUM [Concomitant]
  14. ZOCOR [Concomitant]
  15. VITAMIN E [Concomitant]
  16. VITAMIN C [Concomitant]
  17. ONE A DAY VITAMIN [Concomitant]
  18. VITAMIN D [Concomitant]
  19. MAALOX [Concomitant]

REACTIONS (2)
  - DENTAL OPERATION [None]
  - SINUSITIS [None]
